FAERS Safety Report 23466593 (Version 1)
Quarter: 2024Q1

REPORT INFORMATION
  Report Type: Spontaneous
  Country: US (occurrence: US)
  Receive Date: 20240201
  Receipt Date: 20240201
  Transmission Date: 20240409
  Serious: Yes (Other)
  Sender: FDA-Public Use
  Company Number: US-BRISTOL-MYERS SQUIBB COMPANY-2024-015020

PATIENT
  Age: 67 Year
  Sex: Male

DRUGS (1)
  1. REVLIMID [Suspect]
     Active Substance: LENALIDOMIDE
     Indication: Plasma cell myeloma
     Dosage: 21 DAYS DAILY AND 7 DAYS OFF
     Route: 048

REACTIONS (6)
  - Sinusitis [Recovered/Resolved]
  - Tooth infection [Recovered/Resolved]
  - Ear discomfort [Unknown]
  - Sinus congestion [Unknown]
  - Paranasal sinus hypersecretion [Unknown]
  - Epistaxis [Unknown]

NARRATIVE: CASE EVENT DATE: 20231201
